FAERS Safety Report 6145735-8 (Version None)
Quarter: 2009Q2

REPORT INFORMATION
  Report Type: 
  Country: None (occurrence: None)
  Receive Date: 20090407
  Receipt Date: 20090331
  Transmission Date: 20091009
  Serious: Yes (Disabling)
  Sender: FDA-Public Use
  Company Number: GB-ELI_LILLY_AND_COMPANY-GB200904000303

PATIENT
  Age: 50 Year
  Sex: Female
  Weight: 87 kg

DRUGS (13)
  1. BYETTA [Suspect]
     Indication: DIABETES MELLITUS
     Dosage: 10 UG, UNKNOWN
     Route: 058
     Dates: start: 20090122, end: 20090311
  2. ASPIRIN [Concomitant]
     Dosage: 1 D/F, DAILY (1/D)
     Route: 048
  3. ATORVASTATIN [Concomitant]
     Dosage: 40 MG, 2/D
     Route: 048
  4. CALCIUM CARBONATE [Concomitant]
     Dosage: 1 D/F, 2/D
     Route: 048
  5. FENOBIBRATE [Concomitant]
     Dosage: 1 D/F, DAILY (1/D)
     Route: 048
  6. FLUCONAZOLE [Concomitant]
     Dosage: 1 D/F, DAILY (1/D)
     Route: 048
  7. FLUTICASONE PROPIONATE [Concomitant]
     Dosage: 1 D/F, DAILY (1/D)
     Route: 045
  8. GABAPENTIN [Concomitant]
     Dosage: 2 D/F, 3/D
     Route: 048
  9. GLICLAZIDE [Concomitant]
     Dosage: 2 D/F, 2/D
     Route: 048
  10. METFORMIN HCL [Concomitant]
     Dosage: 2 D/F, 3/D
     Route: 048
  11. PARACETAMOL [Concomitant]
     Dosage: 500 MG, 4/D
     Route: 048
  12. SALBUTAMOL [Concomitant]
     Dosage: 2 D/F, AS NEEDED
     Route: 055
  13. TRAMADOL HCL [Concomitant]
     Dosage: 1 D/F, 2/D
     Route: 048

REACTIONS (5)
  - HYPOAESTHESIA [None]
  - HYPOAESTHESIA FACIAL [None]
  - MALAISE [None]
  - PARAESTHESIA [None]
  - PULSE PRESSURE DECREASED [None]
